FAERS Safety Report 6005882-8 (Version None)
Quarter: 2008Q4

REPORT INFORMATION
  Report Type: 
  Country: None (occurrence: None)
  Receive Date: 20081215
  Receipt Date: 20081204
  Transmission Date: 20090506
  Serious: Yes (Death, Hospitalization, Other)
  Sender: FDA-Public Use
  Company Number: 54955

PATIENT
  Age: 27 Year
  Sex: Male

DRUGS (1)
  1. BLEOMYCIN FOR INJ. [Suspect]
     Indication: OVARIAN GERM CELL CANCER
     Dosage: 30 MG IV/ DAYS, 1, 8, AND 15
     Route: 042

REACTIONS (1)
  - PULMONARY FIBROSIS [None]
